FAERS Safety Report 16352204 (Version 1)
Quarter: 2019Q2

REPORT INFORMATION
  Report Type: Spontaneous
  Country: GB (occurrence: GB)
  Receive Date: 20190524
  Receipt Date: 20190524
  Transmission Date: 20190711
  Serious: Yes (Other)
  Sender: FDA-Public Use
  Company Number: GB-TEVA-2019-GB-1053689

PATIENT
  Age: 41 Year
  Sex: Female
  Weight: 60.32 kg

DRUGS (1)
  1. BECLOMETASONE DIPROPIONATE [Suspect]
     Active Substance: BECLOMETHASONE DIPROPIONATE
     Indication: SEASONAL ALLERGY
     Dosage: 1-2 SPRAYS TWICE A DAY
     Route: 045
     Dates: start: 20180401, end: 20180731

REACTIONS (3)
  - Extrasystoles [Unknown]
  - Palpitations [Unknown]
  - Cardiac flutter [Recovered/Resolved]

NARRATIVE: CASE EVENT DATE: 20180401
